FAERS Safety Report 5724457-9 (Version None)
Quarter: 2008Q2

REPORT INFORMATION
  Report Type: 
  Country: None (occurrence: None)
  Receive Date: 20080429
  Receipt Date: 20080422
  Transmission Date: 20081010
  Serious: Yes (Other)
  Sender: FDA-Public Use
  Company Number: 2008SP007649

PATIENT
  Age: 14 Year
  Sex: Female
  Weight: 50 kg

DRUGS (1)
  1. DESLORATADINE [Suspect]
     Indication: DRUG USE FOR UNKNOWN INDICATION
     Dosage: 50 MG;PO
     Route: 048
     Dates: start: 20080422, end: 20080422

REACTIONS (3)
  - AGITATION [None]
  - INTENTIONAL OVERDOSE [None]
  - PSYCHOMOTOR HYPERACTIVITY [None]
